FAERS Safety Report 16980017 (Version 1)
Quarter: 2019Q4

REPORT INFORMATION
  Report Type: Spontaneous
  Country: FR (occurrence: FR)
  Receive Date: 20191031
  Receipt Date: 20191031
  Transmission Date: 20200122
  Serious: Yes (Hospitalization)
  Sender: FDA-Public Use
  Company Number: FR-PFIZER INC-2019466675

PATIENT
  Age: 74 Year
  Sex: Female
  Weight: 82 kg

DRUGS (3)
  1. ZOLOFT [Suspect]
     Active Substance: SERTRALINE HYDROCHLORIDE
     Indication: DEPRESSION
     Dosage: 25 MG, 1X/DAY
     Route: 048
  2. MIANSERINE ARROW [Suspect]
     Active Substance: MIANSERIN HYDROCHLORIDE
     Indication: DEPRESSION
     Dosage: 10 MG, 1X/DAY
     Route: 048
  3. CODOLIPRANE [Suspect]
     Active Substance: ACETAMINOPHEN\CODEINE PHOSPHATE
     Indication: CHOLECYSTITIS
     Dosage: UNK
     Route: 048
     Dates: start: 20190813, end: 20190815

REACTIONS (2)
  - Dyspnoea [Not Recovered/Not Resolved]
  - Cognitive disorder [Recovered/Resolved]

NARRATIVE: CASE EVENT DATE: 20190815
